FAERS Safety Report 17777851 (Version 1)
Quarter: 2020Q2

REPORT INFORMATION
  Report Type: Spontaneous
  Country: FR (occurrence: FR)
  Receive Date: 20200513
  Receipt Date: 20200513
  Transmission Date: 20200714
  Serious: Yes (Other)
  Sender: FDA-Public Use
  Company Number: FR-CELLTRION-2020-FR-000132

PATIENT
  Age: 25 Year
  Sex: Male

DRUGS (3)
  1. LEVOFLOXACIN (NON-SPECIFIC) [Suspect]
     Active Substance: LEVOFLOXACIN
     Indication: CEREBROSPINAL FLUID LEAKAGE
     Dosage: 750 MG DAILY
     Route: 048
  2. OXYBUTYNIN. [Concomitant]
     Active Substance: OXYBUTYNIN CHLORIDE
  3. HYDROXYZINE [Concomitant]
     Active Substance: HYDROXYZINE HYDROCHLORIDE

REACTIONS (2)
  - Motor neurone disease [Unknown]
  - Muscle contractions involuntary [Unknown]
